FAERS Safety Report 6182660 (Version 2)
Quarter: 2019Q2

REPORT INFORMATION
  Report Type: Spontaneous
  Country: FR (occurrence: FR)
  Receive Date: 20061211
  Receipt Date: 20190404
  Transmission Date: 20190711
  Serious: Yes (Hospitalization, Other)
  Sender: FDA-Public Use
  Company Number: FR-AVENTIS-200614198FR

PATIENT
  Age: 60 Year
  Sex: Female
  Weight: 70 kg

DRUGS (17)
  1. CLAFORAN [Suspect]
     Active Substance: CEFOTAXIME SODIUM
     Indication: ILL-DEFINED DISORDER
     Dosage: 3 G, QD
     Route: 042
  2. SPIRONOLACTONE. [Concomitant]
     Active Substance: SPIRONOLACTONE
     Dosage: UNK UNK, UNK
     Route: 065
     Dates: end: 20061027
  3. ALDACTONE [POTASSIUM CANRENOATE] [Concomitant]
     Active Substance: CANRENOATE POTASSIUM
     Indication: ILL-DEFINED DISORDER
     Dosage: UNK UNK, UNK
     Route: 065
     Dates: end: 20061027
  4. TARDYFERON [Concomitant]
     Active Substance: FERROUS SULFATE
     Dosage: UNK, UNK
     Route: 065
  5. SEROPRAM [CITALOPRAM HYDROCHLORIDE] [Concomitant]
     Indication: ILL-DEFINED DISORDER
     Dosage: UNK UNK, UNK
     Route: 065
  6. TARDYFERON B9 [FERROUS SULFATE;FOLIC ACID;MUCOPROTEOSE] [Concomitant]
     Indication: ILL-DEFINED DISORDER
     Dosage: UNK UNK, UNK
     Route: 065
  7. LACTULOSE. [Suspect]
     Active Substance: LACTULOSE
     Indication: ILL-DEFINED DISORDER
     Dosage: UNK UNK,QD
     Route: 048
     Dates: end: 20061023
  8. ENOXAPARIN [Concomitant]
     Active Substance: ENOXAPARIN
     Dosage: UNK UNK, UNK
     Route: 065
  9. OMEPRAZOLE. [Concomitant]
     Active Substance: OMEPRAZOLE
     Dosage: UNK UNK, UNK
     Route: 065
     Dates: end: 20061023
  10. PROPRANOLOL [Concomitant]
     Active Substance: PROPRANOLOL HYDROCHLORIDE
     Dosage: UNK UNK, UNK
     Route: 065
  11. GENTAMICIN SULFATE. [Suspect]
     Active Substance: GENTAMICIN SULFATE
     Indication: ILL-DEFINED DISORDER
     Dosage: UNK UNK,QD
     Route: 030
     Dates: start: 20061009, end: 20061023
  12. CITALOPRAM [Concomitant]
     Active Substance: CITALOPRAM HYDROBROMIDE
     Dosage: UNK UNK, UNK
     Route: 065
  13. UMULINE [Concomitant]
     Active Substance: INSULIN HUMAN
     Indication: ILL-DEFINED DISORDER
     Dosage: UNK UNK, UNK
     Route: 065
  14. LOVENOX [Concomitant]
     Active Substance: ENOXAPARIN SODIUM
     Indication: ILL-DEFINED DISORDER
     Dosage: UNK UNK, UNK
     Route: 065
  15. AVLOCARDYL [PROPRANOLOL HYDROCHLORIDE] [Concomitant]
     Indication: ILL-DEFINED DISORDER
     Dosage: UNK UNK, UNK
     Route: 065
  16. DAFALGAN CODEINE [Concomitant]
     Active Substance: ACETAMINOPHEN\CODEINE PHOSPHATE
     Indication: ILL-DEFINED DISORDER
     Dosage: UNK, UNK
     Route: 065
     Dates: end: 20061023
  17. LASILIX [Suspect]
     Active Substance: FUROSEMIDE
     Indication: ILL-DEFINED DISORDER
     Dosage: 40 MG,QD,
     Route: 048
     Dates: end: 20061027

REACTIONS (3)
  - Proteinuria [Recovered/Resolved]
  - Hypokalaemia [Recovered/Resolved]
  - Acute kidney injury [Recovered/Resolved]

NARRATIVE: CASE EVENT DATE: 20061023
